FAERS Safety Report 4585812-6 (Version None)
Quarter: 2005Q1

REPORT INFORMATION
  Report Type: 
  Country: None (occurrence: None)
  Receive Date: 20050216
  Receipt Date: 20050202
  Transmission Date: 20050727
  Serious: Yes (Life-Threatening)
  Sender: FDA-Public Use
  Company Number: 05-02-0203

PATIENT
  Age: 81 Year

DRUGS (7)
  1. METFORMIN HCL [Suspect]
     Dosage: 850MG BD ORAL
     Route: 048
     Dates: end: 20050111
  2. FRUSEMIDE [Concomitant]
  3. GLICLAZIDE [Concomitant]
  4. RAMIPRIL [Concomitant]
  5. THEOPHYLLINE [Concomitant]
  6. BECLOMETHASONE DIPROPIONATE [Concomitant]
  7. COMBIVENT QDS [Concomitant]

REACTIONS (3)
  - CHRONIC OBSTRUCTIVE AIRWAYS DISEASE EXACERBATED [None]
  - LACTIC ACIDOSIS [None]
  - METABOLIC ACIDOSIS [None]
